FAERS Safety Report 13340674 (Version 1)
Quarter: 2017Q1

REPORT INFORMATION
  Report Type: Spontaneous
  Country: US (occurrence: US)
  Receive Date: 20170316
  Receipt Date: 20170316
  Transmission Date: 20170428
  Serious: No
  Sender: FDA-Public Use
  Company Number: US-AUROBINDO-AUR-APU-2016-07280

PATIENT
  Age: 19 Year
  Sex: Male

DRUGS (1)
  1. LAMOTRIGINE TABLETS 25 MG [Suspect]
     Active Substance: LAMOTRIGINE
     Indication: AFFECTIVE DISORDER
     Dosage: 25 MG DAILY (8 TH DAY HALF TABLET 12.5 MG)
     Route: 065
     Dates: start: 20160509, end: 20160516

REACTIONS (6)
  - Incorrect dose administered [Recovering/Resolving]
  - Pruritus [Recovering/Resolving]
  - Eye pain [Recovering/Resolving]
  - Rash macular [Recovering/Resolving]
  - Erythema [Recovering/Resolving]
  - Rash [Recovering/Resolving]

NARRATIVE: CASE EVENT DATE: 20160515
